FAERS Safety Report 24221344 (Version 1)
Quarter: 2024Q3

REPORT INFORMATION
  Report Type: Spontaneous
  Country: TR (occurrence: TR)
  Receive Date: 20240819
  Receipt Date: 20240819
  Transmission Date: 20241016
  Serious: Yes (Hospitalization)
  Sender: NOVO NORDISK
  Company Number: TR-NOVOPROD-1269664

PATIENT
  Sex: Male
  Weight: 73 kg

DRUGS (1)
  1. INSULIN ASPART\INSULIN DEGLUDEC [Suspect]
     Active Substance: INSULIN ASPART\INSULIN DEGLUDEC
     Indication: Type 2 diabetes mellitus
     Dosage: 25 IU, QD (15 IU IN THE MORNING AND 10 UI IN THE EVENING)

REACTIONS (3)
  - Cardiac disorder [Unknown]
  - Respiratory failure [Unknown]
  - Renal disorder [Unknown]
